FAERS Safety Report 7901642-9 (Version None)
Quarter: 2011Q4

REPORT INFORMATION
  Report Type: 
  Country: None (occurrence: None)
  Receive Date: 20111108
  Receipt Date: 20111101
  Transmission Date: 20120403
  Serious: Yes (Death, Other)
  Sender: FDA-Public Use
  Company Number: US-ROCHE-795415

PATIENT
  Sex: Female
  Weight: 119 kg

DRUGS (13)
  1. SIMVASTATIN [Concomitant]
     Indication: BLOOD CHOLESTEROL INCREASED
     Route: 048
  2. AMLODIPINE [Concomitant]
     Route: 048
  3. ISOSORBIDE MONONITRATE [Concomitant]
     Route: 048
  4. BENEFIBER [Concomitant]
     Route: 048
  5. RIBAVARIN [Suspect]
     Indication: HEPATITIS C
     Route: 048
     Dates: start: 20110205, end: 20110720
  6. OMEPRAZOLE [Concomitant]
     Indication: DYSPEPSIA
     Route: 048
  7. ATENOLOL [Concomitant]
     Route: 048
  8. MORPHINE SULFATE [Concomitant]
     Route: 048
  9. MIRALAX [Concomitant]
     Route: 048
  10. OXYCODONE HCL [Concomitant]
     Route: 048
  11. NITROGLYCERIN [Concomitant]
  12. RANEXA [Concomitant]
  13. PEGASYS [Suspect]
     Indication: HEPATITIS C
     Route: 058
     Dates: start: 20110205, end: 20110720

REACTIONS (2)
  - DIZZINESS [None]
  - DEATH [None]
